FAERS Safety Report 10176244 (Version 1)
Quarter: 2014Q2

REPORT INFORMATION
  Report Type: Spontaneous
  Country: US (occurrence: US)
  Receive Date: 20140516
  Receipt Date: 20140516
  Transmission Date: 20141212
  Serious: No
  Sender: FDA-Public Use
  Company Number: US-PFIZER INC-2014133058

PATIENT
  Age: 54 Year
  Sex: Female
  Weight: 81.63 kg

DRUGS (2)
  1. REVATIO [Suspect]
     Indication: PERIPHERAL ARTERIAL OCCLUSIVE DISEASE
     Dosage: 20 MG, 3X/DAY
     Dates: start: 2008
  2. METOPROLOL [Concomitant]
     Indication: HEART RATE INCREASED
     Dosage: 50 MG, 2X/DAY

REACTIONS (1)
  - Pain in extremity [Unknown]
